FAERS Safety Report 9500821 (Version 1)
Quarter: 2013Q1

REPORT INFORMATION
  Report Type: Spontaneous
  Country: US (occurrence: None)
  Receive Date: 20130107
  Receipt Date: 20130107
  Transmission Date: 20140127
  Serious: No
  Sender: FDA-Public Use
  Company Number: PHEH2012US019635

PATIENT
  Age: 41 Year
  Sex: Male

DRUGS (5)
  1. GILENYA (FINGOLIMOD) CAPSULE, 0.5MG [Suspect]
     Route: 048
  2. PROTONIX (PANTOPRAZOLE) [Concomitant]
  3. MULTIVITAMINS (ASCORBIC ACID, ERGOCALCIFEROL, FOLIC ACID, NICOTINAMIDE, PANTHENOL, RETINOL, RIBOFLAVIN, THIAMINE HYDROCHLORIDE) [Concomitant]
  4. FLAXSEED OIL (LINUM USITATISSIMUM SEED OIL) [Concomitant]
  5. VITAMIN B NOS (VITAMIN B NOS) [Concomitant]

REACTIONS (1)
  - Injection site haematoma [None]
